FAERS Safety Report 21995222 (Version 1)
Quarter: 2023Q1

REPORT INFORMATION
  Report Type: Spontaneous
  Country: US (occurrence: None)
  Receive Date: 20230214
  Receipt Date: 20230214
  Transmission Date: 20230418
  Serious: Yes (Other)
  Sender: FDA-Public Use
  Company Number: None

PATIENT
  Age: 61 Year
  Sex: Male
  Weight: 99 kg

DRUGS (2)
  1. MAGNESIUM CITRATE [Suspect]
     Active Substance: MAGNESIUM CITRATE
     Indication: Constipation
     Dosage: FREQUENCY : AS NEEDED;?
     Route: 048
  2. LISINOPRIL [Concomitant]
     Active Substance: LISINOPRIL

REACTIONS (9)
  - Abdominal pain upper [None]
  - Blood pressure increased [None]
  - Hyperhidrosis [None]
  - Back pain [None]
  - Muscle spasms [None]
  - Arthralgia [None]
  - Pain in extremity [None]
  - Dizziness [None]
  - Heart rate decreased [None]

NARRATIVE: CASE EVENT DATE: 20220703
